FAERS Safety Report 6983460-1 (Version None)
Quarter: 2010Q3

REPORT INFORMATION
  Report Type: 
  Country: None (occurrence: None)
  Receive Date: 20100914
  Receipt Date: 20080806
  Transmission Date: 20110219
  Serious: No
  Sender: FDA-Public Use
  Company Number: US-WYE-H03634408

PATIENT
  Age: 50 Year
  Sex: Male
  Weight: 68.1 kg

DRUGS (2)
  1. ADVIL LIQUI-GELS [Suspect]
     Indication: PAIN
     Dosage: 2 TABLETS TWICE
     Route: 048
     Dates: start: 20080201, end: 20080201
  2. ADVIL LIQUI-GELS [Suspect]
     Indication: STRESS

REACTIONS (4)
  - DIZZINESS [None]
  - HEADACHE [None]
  - LACRIMATION INCREASED [None]
  - ORAL HERPES [None]
